FAERS Safety Report 20211534 (Version 2)
Quarter: 2022Q3

REPORT INFORMATION
  Report Type: Spontaneous
  Country: ES (occurrence: ES)
  Receive Date: 20211221
  Receipt Date: 20220809
  Transmission Date: 20221027
  Serious: Yes (Other)
  Sender: FDA-Public Use
  Company Number: ES-MYLANLABS-2021M1068494

PATIENT
  Age: 18 Year
  Sex: Female

DRUGS (2)
  1. TRANEXAMIC ACID [Suspect]
     Active Substance: TRANEXAMIC ACID
     Indication: Heavy menstrual bleeding
     Dosage: 500 MILLIGRAM, Q8H
     Route: 065
     Dates: start: 2020
  2. TRANEXAMIC ACID [Suspect]
     Active Substance: TRANEXAMIC ACID
     Dosage: 1 AND HALF TABLET;  EVERY 8 HOURS
     Route: 065
     Dates: start: 2020, end: 202203

REACTIONS (4)
  - Menstrual disorder [Recovered/Resolved]
  - Condition aggravated [Recovered/Resolved]
  - Blood iron decreased [Unknown]
  - Incorrect dose administered [Unknown]
